FAERS Safety Report 18477885 (Version 2)
Quarter: 2020Q4

REPORT INFORMATION
  Report Type: Spontaneous
  Country: DE (occurrence: DE)
  Receive Date: 20201108
  Receipt Date: 20201111
  Transmission Date: 20210114
  Serious: Yes (Hospitalization)
  Sender: FDA-Public Use
  Company Number: DE-ASTRAZENECA-2020SF43864

PATIENT
  Age: 64 Year
  Sex: Female

DRUGS (7)
  1. MAGALDRAT [Concomitant]
     Active Substance: MAGALDRATE
     Dosage: 0-0-1-0
  2. ESOMEPRAZOL [Suspect]
     Active Substance: ESOMEPRAZOLE
     Dosage: 20 MG, 1-0-1-0
     Route: 048
  3. METAMIZOLE [Concomitant]
     Active Substance: METAMIZOLE
     Dosage: 40-40-40-40, DROPS
  4. ATORVASTATIN [Concomitant]
     Active Substance: ATORVASTATIN
     Dosage: 20 MG, 0-0-3-0
  5. ALLOPURINOL. [Concomitant]
     Active Substance: ALLOPURINOL
     Dosage: 100 MG, 1.5-0-0-0
  6. FOLSAEURE [Concomitant]
     Active Substance: FOLIC ACID
     Dosage: 54 MG/WEEK, 1-0-0-0
  7. ASS 100 [Suspect]
     Active Substance: ASPIRIN
     Dosage: 100 MG/EVERY 2ND DAY, 0-1-0-0
     Route: 065

REACTIONS (5)
  - Drug intolerance [Unknown]
  - Abdominal pain [Unknown]
  - Product prescribing error [Unknown]
  - Pruritus [Unknown]
  - Rash [Unknown]
